FAERS Safety Report 8469754-1 (Version None)
Quarter: 2012Q2

REPORT INFORMATION
  Report Type: 
  Country: None (occurrence: None)
  Receive Date: 20120626
  Receipt Date: 20120622
  Transmission Date: 20120825
  Serious: Yes (Death, Hospitalization)
  Sender: FDA-Public Use
  Company Number: US-B.I. PHARMACEUTICALS,INC./RIDGEFIELD-2012-BP-03123BP

PATIENT
  Sex: Male
  Weight: 90 kg

DRUGS (7)
  1. PRADAXA [Suspect]
     Indication: ATRIAL FIBRILLATION
     Dosage: 300 MG
     Route: 048
     Dates: start: 20111229
  2. ZOCOR [Concomitant]
     Indication: CARDIAC ENZYMES
  3. ASPIRIN [Concomitant]
  4. ENALAPRIL MALEATE [Concomitant]
  5. ZOSYN [Concomitant]
  6. ALBUTEROL [Concomitant]
  7. ATROVENT [Concomitant]

REACTIONS (16)
  - CARDIO-RESPIRATORY ARREST [None]
  - FRUSTRATION [None]
  - DEHYDRATION [None]
  - ANAEMIA [None]
  - ASTHENIA [None]
  - FEELING ABNORMAL [None]
  - ABDOMINAL PAIN UPPER [None]
  - DIARRHOEA HAEMORRHAGIC [None]
  - PAIN [None]
  - RECTAL HAEMORRHAGE [None]
  - DISORIENTATION [None]
  - DISCOMFORT [None]
  - MALAISE [None]
  - UNRESPONSIVE TO STIMULI [None]
  - NERVOUSNESS [None]
  - GASTROINTESTINAL HAEMORRHAGE [None]
